FAERS Safety Report 7682104-3 (Version None)
Quarter: 2011Q3

REPORT INFORMATION
  Report Type: 
  Country: None (occurrence: None)
  Receive Date: 20110805
  Receipt Date: 20110803
  Transmission Date: 20111222
  Serious: Yes (Death, Hospitalization)
  Sender: FDA-Public Use
  Company Number: 2011SP028528

PATIENT
  Age: 69 Year
  Sex: Male

DRUGS (4)
  1. TEMODAL [Suspect]
     Indication: GLIOBLASTOMA
     Dosage: 270 MG; QD, 140 MG; QD; PO
     Route: 048
     Dates: start: 20110201, end: 20110201
  2. TEMODAL [Suspect]
     Indication: GLIOBLASTOMA
     Dosage: 270 MG; QD, 140 MG; QD; PO
     Route: 048
     Dates: start: 20110323, end: 20110415
  3. BACTRIM [Suspect]
     Indication: PROPHYLACTIC CHEMOTHERAPY
     Dosage: 1 DF; TID; PO
     Dates: start: 20110322, end: 20110505
  4. KEPPRA [Concomitant]

REACTIONS (5)
  - CHOLESTASIS [None]
  - CYTOLYTIC HEPATITIS [None]
  - STENOTROPHOMONAS TEST POSITIVE [None]
  - ESCHERICHIA URINARY TRACT INFECTION [None]
  - FEBRILE BONE MARROW APLASIA [None]
